FAERS Safety Report 15301673 (Version 1)
Quarter: 2018Q4

REPORT INFORMATION
  Report Type: Report from Study
  Country: ES (occurrence: ES)
  Receive Date: 20180821
  Receipt Date: 20180821
  Transmission Date: 20190204
  Serious: Yes (Hospitalization)
  Sender: FDA-Public Use
  Company Number: ES-PFIZER INC-2018331431

PATIENT
  Age: 15 Year
  Sex: Male
  Weight: 53.6 kg

DRUGS (8)
  1. CYTARABINE. [Suspect]
     Active Substance: CYTARABINE
     Indication: ACUTE LYMPHOCYTIC LEUKAEMIA RECURRENT
     Dosage: 3100 MG, 1X/DAY
     Route: 042
     Dates: start: 20170818, end: 20170819
  2. ERWINASE [ASPARAGINASE] [Suspect]
     Active Substance: ASPARAGINASE ERWINIA CHRYSANTHEMI
     Indication: ACUTE LYMPHOCYTIC LEUKAEMIA RECURRENT
     Dosage: 30 KIU, EVERY 4 DAYS
     Route: 030
     Dates: start: 20170803, end: 20170830
  3. LEDERFOLIN [Concomitant]
     Active Substance: LEUCOVORIN CALCIUM
     Indication: PROPHYLAXIS
     Dosage: UNK
     Route: 048
     Dates: start: 20170816, end: 20170817
  4. MESNA G.E.S [Concomitant]
     Indication: PROPHYLAXIS
     Dosage: 100 MG, 1X/DAY
     Route: 042
     Dates: start: 20170816, end: 20170818
  5. METHOTREXATE SODIUM. [Suspect]
     Active Substance: METHOTREXATE SODIUM
     Indication: ACUTE LYMPHOCYTIC LEUKAEMIA RECURRENT
     Dosage: 1555 MG, 1X/DAY
     Route: 042
     Dates: start: 20170815, end: 20170815
  6. DEXAMETASONA KERN PHARMA [Suspect]
     Active Substance: DEXAMETHASONE
     Indication: ACUTE LYMPHOCYTIC LEUKAEMIA RECURRENT
     Dosage: 16 MG, 2X/DAY (EVERY 12 HOURS)
     Route: 042
     Dates: start: 20170814, end: 20170818
  7. VINCRISTINE SULFATE. [Suspect]
     Active Substance: VINCRISTINE SULFATE
     Indication: ACUTE LYMPHOCYTIC LEUKAEMIA RECURRENT
     Dosage: 2 MEQ, WEEKLY
     Route: 042
     Dates: start: 20170804, end: 20170819
  8. CYCLOPHOSPHAMIDE. [Suspect]
     Active Substance: CYCLOPHOSPHAMIDE
     Indication: ACUTE LYMPHOCYTIC LEUKAEMIA RECURRENT
     Dosage: 310 MG, EVERY 18 HOURS
     Route: 042
     Dates: start: 20170816, end: 20170818

REACTIONS (3)
  - Mucosal inflammation [Recovered/Resolved]
  - Pyrexia [Recovered/Resolved]
  - Pancytopenia [Recovered/Resolved]

NARRATIVE: CASE EVENT DATE: 20170823
